FAERS Safety Report 5531605-2 (Version None)
Quarter: 2007Q4

REPORT INFORMATION
  Report Type: 
  Country: None (occurrence: None)
  Receive Date: 20071203
  Receipt Date: 20071126
  Transmission Date: 20080405
  Serious: Yes (Other)
  Sender: FDA-Public Use
  Company Number: PHBS2007DE19855

PATIENT
  Age: 63 Year
  Sex: Female

DRUGS (3)
  1. CYCLOSPORINE [Suspect]
     Indication: LIVER TRANSPLANT
     Dates: start: 19990801
  2. AZATHIOPRINE [Concomitant]
     Indication: LIVER TRANSPLANT
     Dates: start: 19990801
  3. STEROIDS NOS [Concomitant]
     Indication: LIVER TRANSPLANT
     Dates: start: 19990801

REACTIONS (8)
  - APHASIA [None]
  - CONVULSION [None]
  - DYSARTHRIA [None]
  - ENCEPHALITIS [None]
  - EPILEPSY [None]
  - LEUKOENCEPHALOPATHY [None]
  - PARTIAL SEIZURES [None]
  - SPEECH DISORDER [None]
